FAERS Safety Report 7804670-7 (Version None)
Quarter: 2011Q4

REPORT INFORMATION
  Report Type: 
  Country: None (occurrence: None)
  Receive Date: 20111010
  Receipt Date: 20111003
  Transmission Date: 20120403
  Serious: Yes (Other)
  Sender: FDA-Public Use
  Company Number: US-AMGEN-USASP2011046449

PATIENT
  Age: 27 Year
  Sex: Female

DRUGS (4)
  1. ENBREL [Suspect]
     Indication: ANKYLOSING SPONDYLITIS
     Dosage: 50 MG, QWK
  2. ENBREL [Suspect]
  3. CLOMID [Concomitant]
  4. PRENATAL VITAMINS                  /01549301/ [Concomitant]
     Route: 058

REACTIONS (2)
  - AMNIOCENTESIS ABNORMAL [None]
  - STILLBIRTH [None]
